FAERS Safety Report 9961619 (Version 1)
Quarter: 2014Q1

REPORT INFORMATION
  Report Type: Report from Study
  Country: US (occurrence: US)
  Receive Date: 20140305
  Receipt Date: 20140305
  Transmission Date: 20141002
  Serious: No
  Sender: FDA-Public Use
  Company Number: US-ABBVIE-13P-163-1114453-00

PATIENT
  Age: 47 Year
  Sex: Male

DRUGS (2)
  1. HUMIRA [Suspect]
     Indication: PROCTITIS ULCERATIVE
     Dates: start: 201303, end: 201306
  2. ASACOL [Concomitant]
     Indication: PROCTITIS ULCERATIVE

REACTIONS (5)
  - Sluggishness [Not Recovered/Not Resolved]
  - Drug ineffective [Not Recovered/Not Resolved]
  - Proctitis ulcerative [Not Recovered/Not Resolved]
  - Abdominal distension [Not Recovered/Not Resolved]
  - Frequent bowel movements [Not Recovered/Not Resolved]
